FAERS Safety Report 10595037 (Version 1)
Quarter: 2014Q4

REPORT INFORMATION
  Report Type: Spontaneous
  Country: AU (occurrence: None)
  Receive Date: 20141107
  Receipt Date: 20141107
  Transmission Date: 20150529
  Serious: Yes (Hospitalization)
  Sender: FDA-Public Use
  Company Number: GAM-374-14-AU

PATIENT
  Age: 62 Year
  Sex: Male

DRUGS (2)
  1. OCTAGAM IMMUNE GLOBULIN (HUMAN) [Suspect]
     Active Substance: HUMAN IMMUNOGLOBULIN G
     Indication: PRODUCT USED FOR UNKNOWN INDICATION
     Dosage: (1X 1/TOTAL) (NOT OTHERWISE SPECIFIED)
     Route: 042
     Dates: start: 20130105, end: 20130405
  2. PARACETAMOL [Concomitant]
     Active Substance: ACETAMINOPHEN

REACTIONS (3)
  - Renal impairment [None]
  - Rash [None]
  - Jaundice [None]

NARRATIVE: CASE EVENT DATE: 20130405
